FAERS Safety Report 6486583-9 (Version None)
Quarter: 2009Q4

REPORT INFORMATION
  Report Type: 
  Country: None (occurrence: None)
  Receive Date: 20091210
  Receipt Date: 20091202
  Transmission Date: 20100525
  Serious: Yes (Other)
  Sender: FDA-Public Use
  Company Number: PHHY2009MX53239

PATIENT
  Age: 58 Year
  Sex: Male

DRUGS (2)
  1. DIOVAN [Suspect]
     Indication: HYPERTENSION
     Dosage: 1 TABLET (160 MG) DAILY
     Route: 048
  2. OPTIVISION [Concomitant]

REACTIONS (4)
  - ALOPECIA [None]
  - ARRHYTHMIA [None]
  - DIZZINESS [None]
  - DYSPEPSIA [None]
